FAERS Safety Report 8695089 (Version 2)
Quarter: 2013Q4

REPORT INFORMATION
  Report Type: Spontaneous
  Country: US (occurrence: US)
  Receive Date: 20120731
  Receipt Date: 20131101
  Transmission Date: 20140711
  Serious: Yes (Hospitalization, Other)
  Sender: FDA-Public Use
  Company Number: US-009507513-1207USA009851

PATIENT
  Sex: Female

DRUGS (4)
  1. ZOCOR [Suspect]
     Dosage: 80 MG, UNK
     Route: 048
  2. TREDAPTIVE [Suspect]
     Dosage: 1000MG/20 MG
     Route: 048
  3. METOPROLOL [Concomitant]
  4. SALUTEC [Concomitant]

REACTIONS (2)
  - Hepatic failure [Unknown]
  - Rhabdomyolysis [Unknown]
